FAERS Safety Report 6335798-9 (Version None)
Quarter: 2009Q3

REPORT INFORMATION
  Report Type: 
  Country: None (occurrence: None)
  Receive Date: 20090831
  Receipt Date: 20090825
  Transmission Date: 20100115
  Serious: Yes (Hospitalization)
  Sender: FDA-Public Use
  Company Number: AU-GENENTECH-284338

PATIENT
  Sex: Female
  Weight: 78.7 kg

DRUGS (2)
  1. APOMAB (PRO95780) [Suspect]
     Indication: B-CELL LYMPHOMA
     Dosage: 820 MG, UNK
     Route: 042
     Dates: start: 20080923, end: 20090106
  2. RITUXIMAB [Suspect]
     Indication: B-CELL LYMPHOMA
     Dosage: 712.5 MG, 1/WEEK
     Route: 042
     Dates: start: 20080922, end: 20081111

REACTIONS (1)
  - PROGRESSIVE MULTIFOCAL LEUKOENCEPHALOPATHY [None]
